FAERS Safety Report 21671575 (Version 1)
Quarter: 2022Q4

REPORT INFORMATION
  Report Type: Spontaneous
  Country: NL (occurrence: NL)
  Receive Date: 20221202
  Receipt Date: 20221202
  Transmission Date: 20230112
  Serious: Yes (Other)
  Sender: FDA-Public Use
  Company Number: None

PATIENT
  Sex: Female
  Weight: 80 kg

DRUGS (5)
  1. QUETIAPINE [Suspect]
     Active Substance: QUETIAPINE
     Indication: Product used for unknown indication
     Dosage: 25 MILLIGRAM DAILY; BRAND NAME NOT SPECIFIED, FORM STRENGTH : 25 MG, THERAPY END DATE : ASKU
     Route: 065
     Dates: start: 20210906
  2. DILTIAZEM [Concomitant]
     Active Substance: DILTIAZEM
     Indication: Product used for unknown indication
     Dosage: BRAND NAME NOT SPECIFIED, FORM STRENGTH : 60 MG, THERAPY START DATE AND END DATE : ASKU
     Route: 065
  3. CYANOCOBALAMIN [Concomitant]
     Active Substance: CYANOCOBALAMIN
     Indication: Product used for unknown indication
     Dosage: INJECTION FLUID, INJVLST,BRAND NAME NOT SPECIFIED, FORM STRENGTH : 1 MG/ML, THERAPY START DATE AND E
  4. NITROGLYCERIN [Concomitant]
     Active Substance: NITROGLYCERIN
     Indication: Product used for unknown indication
     Dosage: BRAND NAME NOT SPECIFIED, UNIT DOSE : 0.4 MG, THERAPY START AND END DATE : ASKU, STRENGTH: 0.4 MG/DO
  5. CLOPIDOGREL [Concomitant]
     Active Substance: CLOPIDOGREL BISULFATE
     Indication: Product used for unknown indication
     Dosage: BRAND NAME NOT SPECIFIED, FORM STRENGTH : 75 MG, THERAPY START DATE AND END DATE : ASKU
     Route: 065

REACTIONS (3)
  - Apnoea [Not Recovered/Not Resolved]
  - Snoring [Not Recovered/Not Resolved]
  - Weight increased [Unknown]
